FAERS Safety Report 15111023 (Version 1)
Quarter: 2018Q3

REPORT INFORMATION
  Report Type: Spontaneous
  Country: TW (occurrence: TW)
  Receive Date: 20180705
  Receipt Date: 20180705
  Transmission Date: 20181010
  Serious: Yes (Other)
  Sender: FDA-Public Use
  Company Number: TW-BAYER-2018-120640

PATIENT
  Sex: Male

DRUGS (1)
  1. MAGNEVIST [Suspect]
     Active Substance: GADOPENTETATE DIMEGLUMINE
     Dosage: UNK UNK, ONCE
     Dates: start: 201805

REACTIONS (3)
  - Loss of consciousness [None]
  - Cardiogenic shock [None]
  - Unresponsive to stimuli [None]

NARRATIVE: CASE EVENT DATE: 201805
